FAERS Safety Report 4606721-X (Version None)
Quarter: 2005Q1

REPORT INFORMATION
  Report Type: 
  Country: None (occurrence: None)
  Receive Date: 20050310
  Receipt Date: 20050302
  Transmission Date: 20050727
  Serious: Yes (Hospitalization, Other)
  Sender: FDA-Public Use
  Company Number: 2004048331

PATIENT
  Age: 77 Year
  Sex: Female
  Weight: 68.0396 kg

DRUGS (4)
  1. LIPITOR [Suspect]
     Indication: BLOOD CHOLESTEROL
     Dosage: 10 MG (10 MG, 1 IN 1 D), ORAL
     Route: 048
     Dates: start: 20030101
  2. ASPIRIN [Concomitant]
  3. RISEDRONATE SODIUM (RISEDRONATE SODIUM) [Concomitant]
  4. DOCUSATE SODIUM (DOCUSATE SODIUM) [Concomitant]

REACTIONS (2)
  - FULL BLOOD COUNT ABNORMAL [None]
  - RECTAL HAEMORRHAGE [None]
